FAERS Safety Report 26077376 (Version 1)
Quarter: 2025Q4

REPORT INFORMATION
  Report Type: Spontaneous
  Country: US (occurrence: US)
  Receive Date: 20251121
  Receipt Date: 20251121
  Transmission Date: 20260118
  Serious: No
  Sender: NOVO NORDISK
  Company Number: US-NOVOPROD-1312256

PATIENT
  Sex: Male

DRUGS (1)
  1. TRESIBA [Suspect]
     Active Substance: INSULIN DEGLUDEC
     Indication: Product used for unknown indication
     Dosage: UNK
     Route: 058
     Dates: start: 2023, end: 2023

REACTIONS (5)
  - Vomiting [Unknown]
  - Nausea [Unknown]
  - Illness [Unknown]
  - Blood glucose increased [Unknown]
  - Drug ineffective [Unknown]
